FAERS Safety Report 20143305 (Version 2)
Quarter: 2021Q4

REPORT INFORMATION
  Report Type: Spontaneous
  Country: JP (occurrence: JP)
  Receive Date: 20211203
  Receipt Date: 20211224
  Transmission Date: 20220303
  Serious: Yes (Hospitalization, Other)
  Sender: FDA-Public Use
  Company Number: JP-TAKEDA-2021TJP106457

PATIENT
  Age: 8 Decade
  Sex: Male

DRUGS (3)
  1. ALUNBRIG [Suspect]
     Active Substance: BRIGATINIB
     Indication: Non-small cell lung cancer
     Dosage: 180 MILLIGRAM, QD
     Route: 048
     Dates: start: 20210816, end: 20210928
  2. ALUNBRIG [Suspect]
     Active Substance: BRIGATINIB
     Dosage: 90 MILLIGRAM, QD
     Route: 048
  3. ALUNBRIG [Suspect]
     Active Substance: BRIGATINIB
     Dosage: 180 MILLIGRAM, QD
     Route: 048

REACTIONS (4)
  - Hepatic infection [Recovered/Resolved]
  - Pancreatitis [Recovered/Resolved]
  - Lipase increased [Recovered/Resolved]
  - Hepatic enzyme increased [Recovered/Resolved]

NARRATIVE: CASE EVENT DATE: 20210928
